FAERS Safety Report 25001288 (Version 1)
Quarter: 2025Q1

REPORT INFORMATION
  Report Type: Spontaneous
  Country: US (occurrence: US)
  Receive Date: 20250223
  Receipt Date: 20250223
  Transmission Date: 20250408
  Serious: Yes (Other)
  Sender: JOHNSON AND JOHNSON
  Company Number: US-JNJFOC-20250237901

PATIENT
  Sex: Female

DRUGS (1)
  1. ELMIRON [Suspect]
     Active Substance: PENTOSAN POLYSULFATE SODIUM
     Indication: Cystitis interstitial
     Dosage: 100 MG CAPSULES, 2 CAPSULES TWICE A DAY
     Route: 048
     Dates: end: 20220321

REACTIONS (5)
  - Dry age-related macular degeneration [Unknown]
  - Macular oedema [Unknown]
  - Macular hole [Unknown]
  - Macular pigmentary changes [Unknown]
  - Off label use [Unknown]

NARRATIVE: CASE EVENT DATE: 20210101
